FAERS Safety Report 19014278 (Version 1)
Quarter: 2021Q1

REPORT INFORMATION
  Report Type: Report from Study
  Country: CA (occurrence: CA)
  Receive Date: 20210316
  Receipt Date: 20210316
  Transmission Date: 20210420
  Serious: Yes (Death)
  Sender: FDA-Public Use
  Company Number: CA-JNJFOC-A-US2018-170925

PATIENT
  Age: 75 Year
  Sex: Female

DRUGS (19)
  1. MYFORTIC [Concomitant]
     Active Substance: MYCOPHENOLATE SODIUM
  2. CRESTOR [Concomitant]
     Active Substance: ROSUVASTATIN CALCIUM
  3. METOCLOPRAMIDE. [Concomitant]
     Active Substance: METOCLOPRAMIDE
  4. AMILORIDE [Concomitant]
     Active Substance: AMILORIDE
  5. ADCIRCA [Concomitant]
     Active Substance: TADALAFIL
  6. SYNTHROID [Concomitant]
     Active Substance: LEVOTHYROXINE SODIUM
  7. RIVAROXABAN [Concomitant]
     Active Substance: RIVAROXABAN
  8. METOLAZONE. [Concomitant]
     Active Substance: METOLAZONE
  9. TRACLEER [Suspect]
     Active Substance: BOSENTAN
     Indication: PULMONARY ARTERIAL HYPERTENSION
     Dosage: UNK
     Route: 048
     Dates: end: 20180221
  10. METOPROLOL. [Concomitant]
     Active Substance: METOPROLOL
  11. VITAMIN D [Concomitant]
     Active Substance: VITAMIN D NOS
  12. FUROSEMIDE. [Concomitant]
     Active Substance: FUROSEMIDE
  13. NEXIUM [Concomitant]
     Active Substance: ESOMEPRAZOLE MAGNESIUM
  14. TYLENOL WITH CODEINE [Concomitant]
     Active Substance: ACETAMINOPHEN\CODEINE PHOSPHATE
  15. FOLIC ACID. [Concomitant]
     Active Substance: FOLIC ACID
  16. OXYGEN. [Concomitant]
     Active Substance: OXYGEN
  17. CEPHALEXIN. [Concomitant]
     Active Substance: CEPHALEXIN
  18. PROLIA [Concomitant]
     Active Substance: DENOSUMAB
  19. VITAMIN B12 [Concomitant]
     Active Substance: CYANOCOBALAMIN

REACTIONS (1)
  - Death [Fatal]

NARRATIVE: CASE EVENT DATE: 20180221
